FAERS Safety Report 4384145-0 (Version None)
Quarter: 2004Q2

REPORT INFORMATION
  Report Type: 
  Country: None (occurrence: None)
  Receive Date: 20040621
  Receipt Date: 20040604
  Transmission Date: 20050107
  Serious: Yes (Other)
  Sender: FDA-Public Use
  Company Number: EM2004-0320

PATIENT

DRUGS (4)
  1. PROLEUKIN [Suspect]
     Indication: RENAL CELL CARCINOMA STAGE UNSPECIFIED
     Dosage: 5 MIU/M2, D 1, 3, 5, WEEKS 1-4, SUBCUTAN.
     Route: 058
  2. LEUCOVORIN CALCIUM [Concomitant]
  3. FLUOROURACIL [Concomitant]
  4. INTERFERON ALFA-2B (INTERFERON ALFA-2B) [Concomitant]

REACTIONS (2)
  - DISEASE RECURRENCE [None]
  - IDIOPATHIC THROMBOCYTOPENIC PURPURA [None]
